FAERS Safety Report 7306079-1 (Version None)
Quarter: 2011Q1

REPORT INFORMATION
  Report Type: 
  Country: None (occurrence: None)
  Receive Date: 20110209
  Receipt Date: 20110204
  Transmission Date: 20110831
  Serious: Yes (Other)
  Sender: FDA-Public Use
  Company Number: 20108852

PATIENT
  Sex: Male

DRUGS (4)
  1. LIORESAL [Suspect]
     Indication: MUSCLE SPASTICITY
     Dosage: DAILY, INTRATHECAL
     Route: 037
  2. CLONIDINE [Concomitant]
  3. METHADONE [Concomitant]
  4. BUPIVACAINE HCL [Concomitant]

REACTIONS (10)
  - HYPOAESTHESIA [None]
  - THERAPEUTIC PRODUCT INEFFECTIVE [None]
  - MUSCULAR WEAKNESS [None]
  - GAIT DISTURBANCE [None]
  - INFECTION [None]
  - FALL [None]
  - PARAESTHESIA [None]
  - MALAISE [None]
  - PAIN IN EXTREMITY [None]
  - URINARY RETENTION [None]
